FAERS Safety Report 7768222-X (Version None)
Quarter: 2011Q3

REPORT INFORMATION
  Report Type: 
  Country: None (occurrence: None)
  Receive Date: 20110922
  Receipt Date: 20110922
  Transmission Date: 20111222
  Serious: Yes (Life-Threatening)
  Sender: FDA-Public Use
  Company Number: None

PATIENT
  Age: 61 Year
  Sex: Female
  Weight: 79.378 kg

DRUGS (1)
  1. HIZENTRA [Suspect]
     Indication: HYPOGAMMAGLOBULINAEMIA
     Dates: start: 20110301, end: 20110312

REACTIONS (1)
  - DEEP VEIN THROMBOSIS [None]
